FAERS Safety Report 5412627-9 (Version None)
Quarter: 2007Q3

REPORT INFORMATION
  Report Type: 
  Country: None (occurrence: None)
  Receive Date: 20070813
  Receipt Date: 20070806
  Transmission Date: 20080115
  Serious: Yes (Hospitalization)
  Sender: FDA-Public Use
  Company Number: US-SANOFI-SYNTHELABO-A03200705011

PATIENT
  Age: 58 Year
  Sex: Male

DRUGS (4)
  1. METOPROLOL SUCCINATE [Concomitant]
     Dosage: UNK
     Route: 048
  2. ECOTRIN [Concomitant]
     Dosage: UNK
     Route: 048
  3. LIPITOR [Concomitant]
     Dosage: UNK
     Route: 048
  4. PLAVIX [Suspect]
     Indication: STENT PLACEMENT
     Route: 048
     Dates: start: 20030101, end: 20070301

REACTIONS (3)
  - BLADDER NEOPLASM [None]
  - BLOOD URINE PRESENT [None]
  - URINARY BLADDER HAEMORRHAGE [None]
